FAERS Safety Report 9030388 (Version 3)
Quarter: 2013Q1

REPORT INFORMATION
  Report Type: Report from Study
  Country: GB (occurrence: GB)
  Receive Date: 20130122
  Receipt Date: 20130305
  Transmission Date: 20140127
  Serious: Yes (Hospitalization)
  Sender: FDA-Public Use
  Company Number: GB-TEVA-381627ISR

PATIENT
  Age: 52 Year
  Sex: Male
  Weight: 90 kg

DRUGS (13)
  1. OXALIPLATIN [Suspect]
     Indication: COLORECTAL CANCER METASTATIC
     Dosage: 177 MILLIGRAM DAILY;
     Route: 042
     Dates: start: 20121026
  2. LEUCOVORIN CALCIUM [Suspect]
     Indication: COLORECTAL CANCER METASTATIC
     Dosage: 350 MILLIGRAM DAILY;
     Route: 042
     Dates: start: 20121026
  3. TIVOZANIB [Suspect]
     Indication: COLORECTAL CANCER METASTATIC
     Dosage: 1.5 MILLIGRAM DAILY; 21 DAY OF 28 DAY CYCLE
     Route: 048
     Dates: start: 20121026, end: 20121101
  4. TIVOZANIB [Suspect]
     Route: 048
     Dates: start: 20121109
  5. 5 FU [Suspect]
     Indication: COLORECTAL CANCER METASTATIC
     Dosage: 800 MILLIGRAM DAILY;
     Route: 040
     Dates: start: 20121026
  6. 5 FU [Suspect]
     Dosage: 5275 MILLIGRAM DAILY;
     Route: 042
     Dates: start: 20121026
  7. SENNA [Concomitant]
     Dates: start: 20120928
  8. DICONAL [Concomitant]
     Dates: start: 201209, end: 20121102
  9. METOCLOPRAMIDE [Concomitant]
  10. DEXAMETHASONE [Concomitant]
     Dates: start: 20121005, end: 20121029
  11. LACTULOSE [Concomitant]
     Dates: start: 20121015
  12. LANSOPRAZOLE [Concomitant]
     Dates: start: 20121005
  13. PARACETAMOL [Concomitant]

REACTIONS (4)
  - Sepsis [Recovered/Resolved]
  - Abdominal pain upper [Recovered/Resolved]
  - Hypoxia [Recovered/Resolved]
  - Abdominal distension [Recovered/Resolved]
